FAERS Safety Report 16947777 (Version 4)
Quarter: 2020Q2

REPORT INFORMATION
  Report Type: Report from Study
  Country: FR (occurrence: FR)
  Receive Date: 20191022
  Receipt Date: 20200505
  Transmission Date: 20200713
  Serious: Yes (Hospitalization, Other)
  Sender: FDA-Public Use
  Company Number: FR-TAKEDA-2019TUS058432

PATIENT
  Sex: Female
  Weight: 55 kg

DRUGS (3)
  1. REVLIMID [Suspect]
     Active Substance: LENALIDOMIDE
     Indication: PLASMA CELL MYELOMA
     Dosage: 5 MILLIGRAM
     Route: 048
     Dates: start: 20190128, end: 20190514
  2. DEXAMETHASONE. [Suspect]
     Active Substance: DEXAMETHASONE
     Indication: PLASMA CELL MYELOMA
     Dosage: 20 MILLIGRAM
     Route: 048
     Dates: start: 20190128, end: 20190514
  3. IXAZOMIB [Suspect]
     Active Substance: IXAZOMIB
     Indication: PLASMA CELL MYELOMA
     Dosage: 3 MILLIGRAM
     Route: 048
     Dates: start: 20190128, end: 20190514

REACTIONS (12)
  - Septic embolus [Recovered/Resolved]
  - Thrombocytopenia [Unknown]
  - Anaemia [Recovering/Resolving]
  - Facial paralysis [Recovered/Resolved]
  - Hemiparesis [Recovered/Resolved]
  - Blood pressure increased [Recovered/Resolved]
  - Cerebral ischaemia [Recovered/Resolved]
  - Listeriosis [Recovered/Resolved]
  - Weight increased [Unknown]
  - Brain abscess [Recovered/Resolved]
  - Neurologic neglect syndrome [Recovered/Resolved]
  - Oedema peripheral [Recovering/Resolving]

NARRATIVE: CASE EVENT DATE: 20190326
